FAERS Safety Report 11741654 (Version 1)
Quarter: 2015Q4

REPORT INFORMATION
  Report Type: Spontaneous
  Country: US (occurrence: None)
  Receive Date: 20151113
  Receipt Date: 20151113
  Transmission Date: 20160304
  Serious: No
  Sender: FDA-Public Use
  Company Number: None

PATIENT
  Age: 51 Year
  Sex: Female

DRUGS (3)
  1. XGEVA [Concomitant]
     Active Substance: DENOSUMAB
  2. AFINITOR [Suspect]
     Active Substance: EVEROLIMUS
     Indication: NEOPLASM MALIGNANT
     Route: 048
     Dates: start: 201509, end: 20151109
  3. LUPRON DEPOT [Concomitant]
     Active Substance: LEUPROLIDE ACETATE

REACTIONS (7)
  - Hepatic neoplasm [None]
  - Malignant neoplasm progression [None]
  - Laboratory test abnormal [None]
  - Hepatic enzyme increased [None]
  - Drug ineffective [None]
  - White blood cell count decreased [None]
  - Pain [None]

NARRATIVE: CASE EVENT DATE: 201511
